FAERS Safety Report 5529754-8 (Version None)
Quarter: 2007Q4

REPORT INFORMATION
  Report Type: 
  Country: None (occurrence: None)
  Receive Date: 20071127
  Receipt Date: 20071114
  Transmission Date: 20080405
  Serious: Yes (Hospitalization)
  Sender: FDA-Public Use
  Company Number: 2007BI022080

PATIENT
  Age: 38 Year
  Sex: Female
  Weight: 71.2147 kg

DRUGS (15)
  1. NATALIZUMAB [Suspect]
     Indication: MULTIPLE SCLEROSIS
     Dosage: ; IV
     Route: 042
     Dates: start: 20070213
  2. DITROPAN XL [Concomitant]
  3. ZOLOFT [Concomitant]
  4. BACLOFEN [Concomitant]
  5. MACRODANTIN [Concomitant]
  6. MULTI-VITAMIN [Concomitant]
  7. ASCORBIC ACID [Concomitant]
  8. VITAMIN E [Concomitant]
  9. VITAMIN D [Concomitant]
  10. FISH OIL [Concomitant]
  11. MIDRIN [Concomitant]
  12. ULTRAM [Concomitant]
  13. FLAX SEED OIL [Concomitant]
  14. ZANAFLEX [Concomitant]
  15. ANTIBIOTIC [Concomitant]

REACTIONS (6)
  - BLOOD CULTURE POSITIVE [None]
  - CELLULITIS [None]
  - ENTEROCOCCAL INFECTION [None]
  - INJECTION SITE INFECTION [None]
  - MYALGIA [None]
  - NASOPHARYNGITIS [None]
